FAERS Safety Report 9052808 (Version 4)
Quarter: 2013Q2

REPORT INFORMATION
  Report Type: Spontaneous
  Country: US (occurrence: US)
  Receive Date: 20130207
  Receipt Date: 20130507
  Transmission Date: 20140414
  Serious: Yes (Hospitalization, Disabling, Other)
  Sender: FDA-Public Use
  Company Number: US-009507513-1206USA05391

PATIENT
  Sex: Female
  Weight: 45.71 kg

DRUGS (18)
  1. FOSAMAX [Suspect]
     Indication: OSTEOPOROSIS
     Dosage: 70 MG, UNK
     Route: 048
     Dates: start: 20040715, end: 20070417
  2. EVISTA [Concomitant]
     Indication: OSTEOPOROSIS
     Dosage: 60 MG, QD
     Route: 048
     Dates: start: 2007
  3. NORVASC [Concomitant]
     Indication: HYPERTENSION
     Dosage: 5 MG, QD
     Route: 048
     Dates: start: 2003
  4. ALBUTEROL [Concomitant]
     Indication: CHRONIC OBSTRUCTIVE PULMONARY DISEASE
     Dosage: 90 MICROGRAM, 2 PUFFS PRN
     Route: 055
     Dates: start: 2002
  5. HYDROCHLOROTHIAZIDE [Concomitant]
     Indication: HYPERTENSION
     Dosage: UNK
     Dates: start: 2003
  6. LISINOPRIL [Concomitant]
     Indication: HYPERTENSION
     Dosage: 30 MG, QD
     Route: 048
     Dates: start: 2004
  7. ADVAIR [Concomitant]
     Indication: CHRONIC OBSTRUCTIVE PULMONARY DISEASE
     Dosage: 250/50-550/50 MICROGRAM, BID 1 INH
     Route: 055
     Dates: start: 2004, end: 2005
  8. COMBIVENT [Concomitant]
     Indication: CHRONIC OBSTRUCTIVE PULMONARY DISEASE
     Dosage: UNK
     Dates: start: 2004
  9. ATROVENT [Concomitant]
     Indication: CHRONIC OBSTRUCTIVE PULMONARY DISEASE
     Dosage: UNK
     Dates: start: 2005
  10. SPIRIVA [Concomitant]
     Indication: CHRONIC OBSTRUCTIVE PULMONARY DISEASE
     Dosage: 18 MICROGRAM, 1 INH Q DAY
     Route: 055
     Dates: start: 2006
  11. PROAIR (ALBUTEROL SULFATE) [Concomitant]
     Indication: CHRONIC OBSTRUCTIVE PULMONARY DISEASE
     Dosage: UNK, PRN
     Dates: start: 2006
  12. DUONEB [Concomitant]
     Indication: CHRONIC OBSTRUCTIVE PULMONARY DISEASE
     Dosage: NEBULIZE, Q4-6H PRN
     Route: 055
     Dates: start: 2005
  13. DUONEB [Concomitant]
     Indication: WHEEZING
  14. PREDNISONE [Concomitant]
     Dosage: UNK, PRN
  15. CORTICOSTEROIDS (UNSPECIFIED) [Concomitant]
     Indication: CHRONIC OBSTRUCTIVE PULMONARY DISEASE
     Dosage: UNK
     Dates: start: 2002
  16. IPRATROPIUM BROMIDE [Concomitant]
     Indication: CHRONIC OBSTRUCTIVE PULMONARY DISEASE
     Dosage: UNK
     Dates: start: 2004, end: 2005
  17. PROVENTIL [Concomitant]
     Indication: WHEEZING
     Dosage: 216 MICROGRAM, Q4-6HPRN
     Route: 055
  18. PROVENTIL [Concomitant]
     Indication: ASTHMA

REACTIONS (32)
  - Chronic obstructive pulmonary disease [Unknown]
  - Hypertension [Unknown]
  - Osteonecrosis [Unknown]
  - Hip arthroplasty [Unknown]
  - Arthropathy [Not Recovered/Not Resolved]
  - Back disorder [Not Recovered/Not Resolved]
  - Bone graft [Unknown]
  - Appendicectomy [Unknown]
  - Hip surgery [Unknown]
  - Haematoma [Unknown]
  - Hip arthroplasty [Unknown]
  - Device dislocation [Unknown]
  - Joint dislocation reduction [Unknown]
  - Dyspnoea [Not Recovered/Not Resolved]
  - Headache [Unknown]
  - Osteonecrosis of jaw [Unknown]
  - Bone trimming [Unknown]
  - Dental alveolar anomaly [Unknown]
  - Oral surgery [Unknown]
  - Iron deficiency anaemia [Unknown]
  - Depression [Unknown]
  - Osteopenia [Unknown]
  - Underweight [Unknown]
  - Spinal osteoarthritis [Unknown]
  - Purulent discharge [Unknown]
  - Sequestrectomy [Unknown]
  - Debridement [Unknown]
  - Gingival erythema [Unknown]
  - Musculoskeletal pain [Unknown]
  - Back pain [Unknown]
  - Back pain [Unknown]
  - Gastrooesophageal reflux disease [Unknown]
